FAERS Safety Report 7520003-8 (Version None)
Quarter: 2011Q2

REPORT INFORMATION
  Report Type: 
  Country: None (occurrence: None)
  Receive Date: 20110602
  Receipt Date: 20110519
  Transmission Date: 20111010
  Serious: Yes (Other)
  Sender: FDA-Public Use
  Company Number: PHHY2011US42827

PATIENT
  Sex: Female

DRUGS (3)
  1. LISINOPRIL [Suspect]
  2. LOPRESSOR [Suspect]
  3. EXFORGE HCT [Suspect]

REACTIONS (1)
  - BLOOD PRESSURE INCREASED [None]
